FAERS Safety Report 12184147 (Version 2)
Quarter: 2016Q1

REPORT INFORMATION
  Report Type: Report from Study
  Country: BR (occurrence: BR)
  Receive Date: 20160316
  Receipt Date: 20160317
  Transmission Date: 20160526
  Serious: Yes (Hospitalization, Other)
  Sender: FDA-Public Use
  Company Number: BR-ABBVIE-16K-020-1580387-00

PATIENT
  Sex: Female
  Weight: 58 kg

DRUGS (5)
  1. OSCAL D [Concomitant]
     Active Substance: CALCIUM CARBONATE\CHOLECALCIFEROL
     Indication: MINERAL SUPPLEMENTATION
     Route: 048
     Dates: start: 201603
  2. VITAMINS NOS [Concomitant]
     Active Substance: VITAMINS
     Indication: ARTHRITIS
     Route: 048
     Dates: start: 201603
  3. MIONEVRIX [Concomitant]
     Active Substance: CARISOPRODOL\CYANOCOBALAMIN\METAMIZOLE\PYRIDOXINE\THIAMINE
     Indication: PAIN
     Route: 048
     Dates: start: 201603
  4. METHOTREXATE [Concomitant]
     Active Substance: METHOTREXATE
     Indication: PRODUCT USED FOR UNKNOWN INDICATION
     Route: 048
     Dates: start: 201603
  5. HUMIRA [Suspect]
     Active Substance: ADALIMUMAB
     Indication: ANKYLOSING SPONDYLITIS
     Route: 058
     Dates: start: 20141001

REACTIONS (6)
  - Aggression [Unknown]
  - Irritability [Unknown]
  - Depression [Recovering/Resolving]
  - Arthroscopy [Recovering/Resolving]
  - Gait disturbance [Unknown]
  - Back pain [Not Recovered/Not Resolved]

NARRATIVE: CASE EVENT DATE: 2015
